FAERS Safety Report 6720106-1 (Version None)
Quarter: 2010Q2

REPORT INFORMATION
  Report Type: 
  Country: None (occurrence: None)
  Receive Date: 20100506
  Receipt Date: 20100421
  Transmission Date: 20101027
  Serious: Yes (Death)
  Sender: FDA-Public Use
  Company Number: 20108093

PATIENT
  Age: 55 Year
  Sex: Male

DRUGS (1)
  1. BACLOFEN [Suspect]
     Indication: MUSCLE SPASTICITY
     Dosage: 250 - 300 MCG, DAILY, INTRATHECAL -
     Route: 037

REACTIONS (3)
  - AMYOTROPHIC LATERAL SCLEROSIS [None]
  - ASPHYXIA [None]
  - COMPLETED SUICIDE [None]
